FAERS Safety Report 18302523 (Version 4)
Quarter: 2020Q4

REPORT INFORMATION
  Report Type: Spontaneous
  Country: US (occurrence: US)
  Receive Date: 20200923
  Receipt Date: 20201014
  Transmission Date: 20210113
  Serious: Yes (Other)
  Sender: FDA-Public Use
  Company Number: US-GLAXOSMITHKLINE-US2020AMR189285

PATIENT
  Sex: Female

DRUGS (3)
  1. ZEJULA [Suspect]
     Active Substance: NIRAPARIB
     Indication: OVARIAN CANCER
     Dosage: 200 MG, QD
     Route: 048
     Dates: start: 20200911
  2. ZEJULA [Suspect]
     Active Substance: NIRAPARIB
     Dosage: 100 MG, QD IN THE PM WITHOUT FOOD
     Dates: start: 20200921
  3. ZEJULA [Suspect]
     Active Substance: NIRAPARIB
     Dosage: 200 MG, QD
     Dates: end: 20201003

REACTIONS (19)
  - Rash [Unknown]
  - Neuropathy peripheral [Not Recovered/Not Resolved]
  - Constipation [Unknown]
  - Decreased appetite [Unknown]
  - Abdominal discomfort [Unknown]
  - Laboratory test abnormal [Not Recovered/Not Resolved]
  - Oral candidiasis [Unknown]
  - Adverse drug reaction [Not Recovered/Not Resolved]
  - Skin fissures [Unknown]
  - Oral pain [Unknown]
  - Pain in extremity [Not Recovered/Not Resolved]
  - White blood cell count decreased [Not Recovered/Not Resolved]
  - Product dose omission issue [Unknown]
  - Feeling abnormal [Unknown]
  - Platelet count decreased [Not Recovered/Not Resolved]
  - Dry mouth [Recovering/Resolving]
  - Blood pressure increased [Unknown]
  - Tongue blistering [Recovering/Resolving]
  - Abdominal pain [Unknown]
